FAERS Safety Report 16237118 (Version 2)
Quarter: 2019Q3

REPORT INFORMATION
  Report Type: Spontaneous
  Country: DE (occurrence: DE)
  Receive Date: 20190425
  Receipt Date: 20190909
  Transmission Date: 20191004
  Serious: Yes (Other)
  Sender: FDA-Public Use
  Company Number: DE-SUN PHARMACEUTICAL INDUSTRIES LTD-2019RR-205559

PATIENT
  Age: 56 Year
  Sex: Female
  Weight: 84 kg

DRUGS (4)
  1. OXALIPLATIN SUN 5 MG/ML KONZENTRAT ZUR HERSTELLUNG [Suspect]
     Active Substance: OXALIPLATIN
     Indication: COLON CANCER
     Dosage: 170 MILLIGRAM, UNK, APROX. 500ML / HOUR
     Route: 042
     Dates: start: 201812
  2. OXALIPLATIN SUN 5 MG/ML KONZENTRAT ZUR HERSTELLUNG [Suspect]
     Active Substance: OXALIPLATIN
     Dosage: 170 MILLIGRAM, UNK, APROX. 500ML / HOUR
     Route: 042
     Dates: start: 201812
  3. DEXAMETHASONE. [Concomitant]
     Active Substance: DEXAMETHASONE
     Indication: PRODUCT USED FOR UNKNOWN INDICATION
     Dosage: 8 MILLIGRAM, UNK, 15 MIN BEFORE
     Route: 065
  4. GRANISETRON [Concomitant]
     Active Substance: GRANISETRON
     Indication: PRODUCT USED FOR UNKNOWN INDICATION
     Route: 065

REACTIONS (6)
  - Nausea [Recovered/Resolved]
  - Erythema [Recovered/Resolved]
  - Vision blurred [Recovered/Resolved]
  - Dyspnoea [Recovered/Resolved]
  - Suspected product quality issue [Unknown]
  - Hypotension [Recovered/Resolved]

NARRATIVE: CASE EVENT DATE: 20190402
